FAERS Safety Report 25151259 (Version 1)
Quarter: 2025Q2

REPORT INFORMATION
  Report Type: Spontaneous
  Country: GB (occurrence: GB)
  Receive Date: 20250402
  Receipt Date: 20250402
  Transmission Date: 20250716
  Serious: Yes (Other)
  Sender: PFIZER
  Company Number: None

PATIENT
  Age: 67 Year
  Sex: Female
  Weight: 83 kg

DRUGS (1)
  1. DOXYCYCLINE [Suspect]
     Active Substance: DOXYCYCLINE
     Indication: Lower respiratory tract infection

REACTIONS (6)
  - Jaundice [Recovering/Resolving]
  - Lethargy [Not Recovered/Not Resolved]
  - Hepatic pain [Not Recovered/Not Resolved]
  - Illness [Not Recovered/Not Resolved]
  - Renal pain [Unknown]
  - Medication error [Unknown]

NARRATIVE: CASE EVENT DATE: 20250305
